FAERS Safety Report 8974851 (Version 1)
Quarter: 2012Q4

REPORT INFORMATION
  Report Type: Spontaneous
  Country: US (occurrence: None)
  Receive Date: 20121211
  Receipt Date: 20121211
  Transmission Date: 20130627
  Serious: Yes (Other)
  Sender: FDA-Public Use
  Company Number: 2012MA013822

PATIENT
  Age: 65 Year
  Sex: Female

DRUGS (1)
  1. PACLITAXEL INJECTION USP 6 MG/ML (PACLITAXEL (SEMISYNTHETIC) USP) (PACLITAXEL (SEMISYNTHETIC) USP) [Suspect]
     Indication: OVARIAN CANCER
     Dates: start: 20121203

REACTIONS (3)
  - Flushing [None]
  - Dyspnoea [None]
  - Wheezing [None]
